FAERS Safety Report 5329324-0 (Version None)
Quarter: 2007Q2

REPORT INFORMATION
  Report Type: 
  Country: None (occurrence: None)
  Receive Date: 20070518
  Receipt Date: 20070508
  Transmission Date: 20071010
  Serious: Yes (Hospitalization)
  Sender: FDA-Public Use
  Company Number: DE-ABBOTT-07P-062-0359333-00

PATIENT
  Sex: Female
  Weight: 80 kg

DRUGS (5)
  1. HUMIRA [Suspect]
     Indication: PSORIATIC ARTHROPATHY
     Route: 058
     Dates: start: 20061120, end: 20070129
  2. PREDNISOLONE [Concomitant]
     Indication: PSORIATIC ARTHROPATHY
     Route: 048
     Dates: start: 20041201
  3. IBUPROFEN [Concomitant]
     Indication: PSORIATIC ARTHROPATHY
     Route: 048
  4. METHOTREXATE [Concomitant]
     Indication: PSORIATIC ARTHROPATHY
     Route: 058
     Dates: start: 20070119
  5. VALORON [Concomitant]
     Indication: PSORIATIC ARTHROPATHY
     Route: 048

REACTIONS (7)
  - ARTHRITIS [None]
  - CONDITION AGGRAVATED [None]
  - CYSTITIS [None]
  - HEADACHE [None]
  - MYALGIA [None]
  - PRURITUS [None]
  - RHINITIS [None]
